FAERS Safety Report 10978273 (Version 1)
Quarter: 2015Q2

REPORT INFORMATION
  Report Type: Not Available
  Country: IL (occurrence: IL)
  Receive Date: 20150402
  Receipt Date: 20150402
  Transmission Date: 20150821
  Serious: Yes (Death, Other)
  Sender: FDA-Public Use
  Company Number: IL-CELGENE-082-21880-13080601

PATIENT

DRUGS (2)
  1. REVLIMID [Suspect]
     Active Substance: LENALIDOMIDE
     Indication: MYELODYSPLASTIC SYNDROME
     Dosage: DAYS 6-21
     Route: 048
  2. VIDAZA [Suspect]
     Active Substance: AZACITIDINE
     Indication: MYELODYSPLASTIC SYNDROME
     Dosage: DAYS 1-5
     Route: 058

REACTIONS (11)
  - Sinusitis [Unknown]
  - Myelodysplastic syndrome [Unknown]
  - Toxicity to various agents [Unknown]
  - Acute myeloid leukaemia [Unknown]
  - Pneumonia [Unknown]
  - Adverse event [Unknown]
  - Pyrexia [Unknown]
  - Cytopenia [Unknown]
  - Sepsis [Unknown]
  - General physical health deterioration [Unknown]
  - Death [Fatal]
